FAERS Safety Report 16332127 (Version 1)
Quarter: 2019Q2

REPORT INFORMATION
  Report Type: Report from Study
  Country: US (occurrence: US)
  Receive Date: 20190520
  Receipt Date: 20190520
  Transmission Date: 20190711
  Serious: No
  Sender: FDA-Public Use
  Company Number: US-ACADIA PHARMACEUTICALS INC.-ACA-2019-012578

PATIENT
  Age: 78 Year
  Sex: Male

DRUGS (15)
  1. NUPLAZID [Suspect]
     Active Substance: PIMAVANSERIN TARTRATE
     Indication: PARKINSON^S DISEASE PSYCHOSIS
     Dosage: 34 MG, QD
     Route: 048
     Dates: start: 20190214, end: 201902
  2. COQ10 [Concomitant]
     Active Substance: UBIDECARENONE
     Indication: PRODUCT USED FOR UNKNOWN INDICATION
     Dosage: 10-400 MG CAPSULE
     Route: 048
     Dates: start: 20180925
  3. LANTUS [Concomitant]
     Active Substance: INSULIN GLARGINE
     Indication: PRODUCT USED FOR UNKNOWN INDICATION
     Dosage: 100 INSULIN 100 UNITS/ML 7 UNITS EVERY DAY
     Route: 058
     Dates: start: 20180803
  4. HYDROCHLOROTHIAZIDE. [Concomitant]
     Active Substance: HYDROCHLOROTHIAZIDE
     Indication: PRODUCT USED FOR UNKNOWN INDICATION
     Dosage: 12.5 MG EVERY DAY
     Dates: start: 20180813
  5. CREON [Concomitant]
     Active Substance: PANCRELIPASE AMYLASE\PANCRELIPASE LIPASE\PANCRELIPASE PROTEASE
     Indication: PRODUCT USED FOR UNKNOWN INDICATION
     Dosage: 12000-38000-60000 UNITS 2 CAPSULES THREE TIMES DAILY
     Route: 048
     Dates: start: 20181206
  6. ASPIRIN. [Concomitant]
     Active Substance: ASPIRIN
     Indication: PRODUCT USED FOR UNKNOWN INDICATION
     Dosage: 81 MG, 1 TAB EVERY DAY
     Route: 048
  7. TIMOLOL MALEATE. [Concomitant]
     Active Substance: TIMOLOL MALEATE
     Indication: PRODUCT USED FOR UNKNOWN INDICATION
     Dosage: 0.25% EVERY DAY INTO AFFECTED EYE
     Route: 047
  8. CILOSTAZOL. [Concomitant]
     Active Substance: CILOSTAZOL
     Indication: PRODUCT USED FOR UNKNOWN INDICATION
     Dosage: 100 MG, BID HF HOUR BEFORE OR 2 HOURS AFTER BREAKFAST AND DINNER
     Route: 048
     Dates: start: 20180109
  9. INDOMETHACIN. [Concomitant]
     Active Substance: INDOMETHACIN
     Indication: PRODUCT USED FOR UNKNOWN INDICATION
     Dosage: 25 MG, TID, AS NEEDED
     Route: 048
     Dates: start: 20180314
  10. LOSARTAN. [Concomitant]
     Active Substance: LOSARTAN
     Indication: PRODUCT USED FOR UNKNOWN INDICATION
     Dosage: 50 MG, QD
     Dates: start: 20180517
  11. NUPLAZID [Suspect]
     Active Substance: PIMAVANSERIN TARTRATE
     Indication: HALLUCINATION
  12. NUPLAZID [Suspect]
     Active Substance: PIMAVANSERIN TARTRATE
     Indication: DELUSION
  13. CHOLESTYRAMINE. [Concomitant]
     Active Substance: CHOLESTYRAMINE
     Indication: DIARRHOEA
     Dosage: 1 SCOOP THREE TIMES A DAY EVERY DAY WITH FOOD AS NEEDED
     Route: 048
     Dates: start: 20180314
  14. HYDRALAZINE [Concomitant]
     Active Substance: HYDRALAZINE HYDROCHLORIDE
     Indication: PRODUCT USED FOR UNKNOWN INDICATION
     Dosage: 25 MG, BID
     Route: 048
     Dates: start: 20181231
  15. NOVOLOG [Concomitant]
     Active Substance: INSULIN ASPART
     Indication: PRODUCT USED FOR UNKNOWN INDICATION
     Dosage: 100 UNITS/ML
     Route: 058
     Dates: start: 20181206

REACTIONS (2)
  - Nightmare [Recovered/Resolved]
  - Insomnia [Recovered/Resolved]

NARRATIVE: CASE EVENT DATE: 201902
